FAERS Safety Report 10697190 (Version 1)
Quarter: 2015Q1

REPORT INFORMATION
  Report Type: Spontaneous
  Country: US (occurrence: None)
  Receive Date: 20150107
  Receipt Date: 20150107
  Transmission Date: 20150721
  Serious: No
  Sender: FDA-Public Use
  Company Number: None

PATIENT
  Age: 26 Year
  Sex: Female
  Weight: 72.58 kg

DRUGS (1)
  1. FLUOXETINE [Suspect]
     Active Substance: FLUOXETINE\FLUOXETINE HYDROCHLORIDE
     Indication: DEPRESSION
     Dosage: 1 CAPSULE TAKEN BY MOUTH ONCE DAILY
     Route: 048
     Dates: start: 20141001, end: 20150105

REACTIONS (3)
  - Product quality issue [None]
  - Dyspepsia [None]
  - Insomnia [None]

NARRATIVE: CASE EVENT DATE: 20150105
